FAERS Safety Report 5893064-X (Version None)
Quarter: 2008Q3

REPORT INFORMATION
  Report Type: 
  Country: None (occurrence: None)
  Receive Date: 20080923
  Receipt Date: 20080605
  Transmission Date: 20090109
  Serious: No
  Sender: FDA-Public Use
  Company Number: US-ASTRAZENECA-2006UW21287

PATIENT
  Age: 42 Year
  Sex: Female
  Weight: 90.9 kg

DRUGS (6)
  1. SEROQUEL [Suspect]
     Indication: SCHIZOPHRENIA
     Dosage: 1/2 TAB QAM, 1 1/2 TABS QHS
     Route: 048
     Dates: start: 20030101, end: 20060419
  2. SEROQUEL [Suspect]
     Indication: BIPOLAR DISORDER
     Dosage: 1/2 TAB QAM, 1 1/2 TABS QHS
     Route: 048
     Dates: start: 20030101, end: 20060419
  3. SEROQUEL [Suspect]
     Indication: DEPRESSION
     Dosage: 1/2 TAB QAM, 1 1/2 TABS QHS
     Route: 048
     Dates: start: 20030101, end: 20060419
  4. GEODON [Concomitant]
  5. LEXAPRO [Concomitant]
  6. WELLBUTRIN [Concomitant]

REACTIONS (2)
  - CHRONIC OBSTRUCTIVE PULMONARY DISEASE [None]
  - DIABETES MELLITUS [None]
